FAERS Safety Report 23774745 (Version 2)
Quarter: 2025Q2

REPORT INFORMATION
  Report Type: Spontaneous
  Country: GB (occurrence: GB)
  Receive Date: 20240423
  Receipt Date: 20250401
  Transmission Date: 20250716
  Serious: Yes (Disabling, Other)
  Sender: RANBAXY
  Company Number: GB-MHRA-MED-202401101512287380-NHBYF

PATIENT
  Age: 38 Year
  Sex: Female
  Weight: 65 kg

DRUGS (1)
  1. SERTRALINE [Suspect]
     Active Substance: SERTRALINE HYDROCHLORIDE
     Indication: Product used for unknown indication
     Route: 065

REACTIONS (1)
  - Bruxism [Not Recovered/Not Resolved]

NARRATIVE: CASE EVENT DATE: 20240104
